FAERS Safety Report 12892995 (Version 3)
Quarter: 2017Q1

REPORT INFORMATION
  Report Type: Spontaneous
  Country: US (occurrence: US)
  Receive Date: 20161028
  Receipt Date: 20170103
  Transmission Date: 20170428
  Serious: Yes (Disabling, Other)
  Sender: FDA-Public Use
  Company Number: US-PFIZER INC-2016496009

PATIENT
  Age: 61 Year
  Sex: Female
  Weight: 92 kg

DRUGS (3)
  1. RELPAX [Suspect]
     Active Substance: ELETRIPTAN HYDROBROMIDE
     Dosage: 40 MG, AS NEEDED
  2. MS CONTIN [Concomitant]
     Active Substance: MORPHINE SULFATE
     Indication: PAIN
     Dosage: 90 MG, 3X/DAY (30MG AND 60MG, EVERY 8 HOURS)
     Route: 048
     Dates: start: 1995
  3. RELPAX [Suspect]
     Active Substance: ELETRIPTAN HYDROBROMIDE
     Indication: MIGRAINE
     Dosage: 20 MG, UNK

REACTIONS (6)
  - Fall [Not Recovered/Not Resolved]
  - Memory impairment [Unknown]
  - Concussion [Not Recovered/Not Resolved]
  - Road traffic accident [Unknown]
  - Drug effect incomplete [Unknown]
  - Brain injury [Unknown]

NARRATIVE: CASE EVENT DATE: 20161015
